FAERS Safety Report 13288639 (Version 1)
Quarter: 2017Q1

REPORT INFORMATION
  Report Type: Spontaneous
  Country: GB (occurrence: GB)
  Receive Date: 20170302
  Receipt Date: 20170302
  Transmission Date: 20170428
  Serious: Yes (Hospitalization)
  Sender: FDA-Public Use
  Company Number: GB-ALSI-201700063

PATIENT
  Age: 7 Decade
  Sex: Male

DRUGS (1)
  1. MEDICAL OXYGEN [Suspect]
     Active Substance: OXYGEN
     Indication: PRODUCT USED FOR UNKNOWN INDICATION
     Dates: start: 20170222

REACTIONS (2)
  - Thermal burn [None]
  - Intentional product misuse [None]
